FAERS Safety Report 5419373-6 (Version None)
Quarter: 2007Q3

REPORT INFORMATION
  Report Type: 
  Country: None (occurrence: None)
  Receive Date: 20070815
  Receipt Date: 20070808
  Transmission Date: 20080115
  Serious: Yes (Other)
  Sender: FDA-Public Use
  Company Number: CLOF-10636

PATIENT
  Age: 2 Year
  Sex: Male

DRUGS (2)
  1. CLOFARABINE. MFR: GENZYME [Suspect]
     Indication: ACUTE LYMPHOCYTIC LEUKAEMIA
     Dosage: 40 MG/M2 IV
     Route: 042
  2. CYTARABINE [Suspect]
     Indication: ACUTE LYMPHOCYTIC LEUKAEMIA
     Dosage: 1000 MG/M2 IV
     Route: 042

REACTIONS (1)
  - CAECITIS [None]
